FAERS Safety Report 4668158-7 (Version None)
Quarter: 2005Q2

REPORT INFORMATION
  Report Type: 
  Country: None (occurrence: None)
  Receive Date: 20050523
  Receipt Date: 20041020
  Transmission Date: 20051028
  Serious: Yes (Disabling)
  Sender: FDA-Public Use
  Company Number: PHEH2004US11334

PATIENT
  Age: 65 Year
  Sex: Female

DRUGS (2)
  1. PAMIDRONATE DISODIUM [Suspect]
     Indication: OSTEITIS DEFORMANS
     Dosage: 60 MG Q3-6MOS
     Route: 042
     Dates: start: 19910101, end: 19950101
  2. ALENDRONIC ACID [Suspect]
     Indication: OSTEOPENIA
     Dosage: 70MG/QWK
     Dates: start: 19980101, end: 20040101

REACTIONS (2)
  - OSTEONECROSIS [None]
  - TOOTH EXTRACTION [None]
